FAERS Safety Report 5207358-4 (Version None)
Quarter: 2007Q1

REPORT INFORMATION
  Report Type: 
  Country: None (occurrence: None)
  Receive Date: 20070110
  Receipt Date: 20061226
  Transmission Date: 20070707
  Serious: Yes (Death, Disabling)
  Sender: FDA-Public Use
  Company Number: 2006JP005107

PATIENT
  Sex: Male

DRUGS (10)
  1. TACROLIMUS CAPSULES(TACROLIMUS) CAPSULE [Suspect]
     Indication: RHEUMATOID ARTHRITIS
     Dosage: 1 MG, UID/QD, ORAL
     Route: 048
     Dates: start: 20060601, end: 20060817
  2. TACROLIMUS CAPSULES(TACROLIMUS) CAPSULE [Suspect]
     Indication: RHEUMATOID ARTHRITIS
     Dosage: 1 MG, UID/QD, ORAL
     Route: 048
     Dates: start: 20060822, end: 20060830
  3. PREDNISOLONE [Suspect]
     Indication: RHEUMATOID ARTHRITIS
     Dosage: 10 MG, BID, ORAL
     Route: 048
     Dates: end: 20061105
  4. ENBREL [Suspect]
     Indication: RHEUMATOID ARTHRITIS
     Dosage: 25 MG, SUBCUTANEOUS
     Route: 058
     Dates: end: 20060919
  5. MINOCYCLINE HYDROCHLORIDE [Suspect]
     Indication: RHEUMATOID ARTHRITIS
     Dosage: 100 MG, BID, ORAL
     Route: 048
     Dates: end: 20060830
  6. PLETAL [Suspect]
     Dosage: 100 MG, ORAL
     Route: 048
     Dates: start: 20060831
  7. LANSOPRAZOLE [Suspect]
     Dosage: 30 MG, ORAL
     Route: 048
     Dates: start: 20060831
  8. RHEUMATREX [Concomitant]
  9. NEO-MINOPHAGEN C (GLYCYRRHIZIC ACID, AMMONIUM SALT) INJECTION [Concomitant]
  10. FLOMOX (CEFCAPENE PIVOXIL HYDROCHLORIDE) PER ORAL NOS [Concomitant]

REACTIONS (10)
  - BLOOD AMYLASE INCREASED [None]
  - CONDITION AGGRAVATED [None]
  - HAEMATOCRIT DECREASED [None]
  - HAEMOGLOBIN DECREASED [None]
  - INTERSTITIAL LUNG DISEASE [None]
  - LYMPHOCYTE COUNT DECREASED [None]
  - NEUROGENIC BLADDER [None]
  - RED BLOOD CELL COUNT DECREASED [None]
  - RHEUMATOID ARTHRITIS [None]
  - SPINAL CORD INFARCTION [None]
